FAERS Safety Report 6616478-9 (Version None)
Quarter: 2010Q1

REPORT INFORMATION
  Report Type: 
  Country: None (occurrence: None)
  Receive Date: 20100305
  Receipt Date: 20100222
  Transmission Date: 20100710
  Serious: Yes (Other)
  Sender: FDA-Public Use
  Company Number: US-PFIZER INC-2010022917

PATIENT
  Age: 85 Year
  Sex: Female

DRUGS (1)
  1. CLINDAMYCIN HCL [Suspect]

REACTIONS (2)
  - DRUG HYPERSENSITIVITY [None]
  - MUSCLE SPASMS [None]
